FAERS Safety Report 8393303-X (Version None)
Quarter: 2012Q2

REPORT INFORMATION
  Report Type: 
  Country: None (occurrence: None)
  Receive Date: 20120529
  Receipt Date: 20120517
  Transmission Date: 20120825
  Serious: Yes (Hospitalization)
  Sender: FDA-Public Use
  Company Number: US-ELI_LILLY_AND_COMPANY-US201008001088

PATIENT
  Sex: Female

DRUGS (6)
  1. FORTEO [Suspect]
     Indication: OSTEOPOROSIS
     Dosage: 20 UG, DAILY (1/D)
     Dates: start: 20091009, end: 20100917
  2. GAMMAGARD [Concomitant]
     Indication: IMMUNE SYSTEM DISORDER
     Dosage: UNK, UNKNOWN
  3. FORTEO [Suspect]
     Dosage: 20 UG, DAILY (1/D)
  4. FORTEO [Suspect]
     Dosage: 20 UG, DAILY (1/D)
     Dates: start: 20091009, end: 20100917
  5. VERAPAMIL HCL [Concomitant]
     Dosage: UNK, UNKNOWN
  6. FORTEO [Suspect]
     Dosage: 20 UG, DAILY (1/D)
     Dates: start: 20091009, end: 20100917

REACTIONS (6)
  - INFECTION [None]
  - GINGIVAL DISCOLOURATION [None]
  - TOOTH FRACTURE [None]
  - GINGIVAL ABSCESS [None]
  - ORAL PAIN [None]
  - ANXIETY [None]
